FAERS Safety Report 8332117-3 (Version None)
Quarter: 2012Q2

REPORT INFORMATION
  Report Type: 
  Country: None (occurrence: None)
  Receive Date: 20120502
  Receipt Date: 20110330
  Transmission Date: 20120825
  Serious: Yes (Hospitalization, Other)
  Sender: FDA-Public Use
  Company Number: PHHY2011AU116452

PATIENT
  Sex: Female

DRUGS (1)
  1. ZOLEDRONOC ACID [Suspect]
     Dosage: 5 MG, UNK
     Route: 042
     Dates: start: 20100119

REACTIONS (7)
  - GASTROOESOPHAGEAL REFLUX DISEASE [None]
  - CIRCULATORY COLLAPSE [None]
  - MOUTH ULCERATION [None]
  - LOWER RESPIRATORY TRACT INFECTION [None]
  - ANAEMIA [None]
  - TOOTH DISORDER [None]
  - TOOTHACHE [None]
